FAERS Safety Report 8621956-7 (Version None)
Quarter: 2012Q3

REPORT INFORMATION
  Report Type: 
  Country: None (occurrence: None)
  Receive Date: 20120823
  Receipt Date: 20120823
  Transmission Date: 20120928
  Serious: No
  Sender: FDA-Public Use
  Company Number: None

PATIENT
  Sex: Female

DRUGS (2)
  1. LORAZEPAM [Suspect]
     Indication: POST-TRAUMATIC STRESS DISORDER
     Dosage: 1 MG TID PO
     Route: 048
     Dates: start: 20110101, end: 20120301
  2. LORAZEPAM [Suspect]
     Indication: ANXIETY DISORDER
     Dosage: 1 MG TID PO
     Route: 048
     Dates: start: 20110101, end: 20120301

REACTIONS (2)
  - DRUG INEFFECTIVE [None]
  - PRODUCT SUBSTITUTION ISSUE [None]
